FAERS Safety Report 11131048 (Version 10)
Quarter: 2016Q2

REPORT INFORMATION
  Report Type: Report from Study
  Country: BR (occurrence: BR)
  Receive Date: 20150522
  Receipt Date: 20160524
  Transmission Date: 20160815
  Serious: Yes (Death, Hospitalization)
  Sender: FDA-Public Use
  Company Number: BR-ROCHE-1545001

PATIENT
  Age: 66 Year
  Sex: Female
  Weight: 59.9 kg

DRUGS (6)
  1. BROMAZEPAM [Concomitant]
     Active Substance: BROMAZEPAM
     Indication: INSOMNIA
     Route: 048
     Dates: start: 2013
  2. TRASTUZUMAB [Suspect]
     Active Substance: TRASTUZUMAB
     Indication: HER-2 POSITIVE GASTRIC CANCER
     Dosage: MOST RECENT DOSE ON 04/FEB/2015
     Route: 042
     Dates: start: 20150204
  3. PLACEBO [Suspect]
     Active Substance: UNSPECIFIED INGREDIENT
     Indication: HER-2 POSITIVE GASTRIC CANCER
     Dosage: MOST RECENT DOSE ON 04/FEB/2015
     Route: 042
     Dates: start: 20150204
  4. CISPLATIN. [Suspect]
     Active Substance: CISPLATIN
     Indication: HER-2 POSITIVE GASTRIC CANCER
     Dosage: MOST RECENT DOSE ON 04/FEB/2015
     Route: 042
     Dates: start: 20150204
  5. CAPECITABINE. [Suspect]
     Active Substance: CAPECITABINE
     Indication: HER-2 POSITIVE GASTRIC CANCER
     Dosage: DOSE OF LAST CAPECITABINE WAS 1500 MG AND MOST RECENT DOSE ON 17/FEB/2015
     Route: 048
     Dates: start: 20150204
  6. AMITRIPTYLINE [Concomitant]
     Active Substance: AMITRIPTYLINE
     Indication: DEPRESSION
     Route: 048
     Dates: start: 2013, end: 20150126

REACTIONS (1)
  - Death [Fatal]

NARRATIVE: CASE EVENT DATE: 20150225
